FAERS Safety Report 7768668-X (Version None)
Quarter: 2011Q3

REPORT INFORMATION
  Report Type: 
  Country: None (occurrence: None)
  Receive Date: 20110922
  Receipt Date: 20110321
  Transmission Date: 20111222
  Serious: No
  Sender: FDA-Public Use
  Company Number: US-ASTRAZENECA-2011SE15724

PATIENT
  Age: 42 Year
  Sex: Female
  Weight: 97.5 kg

DRUGS (9)
  1. ASPIRIN [Concomitant]
     Indication: CARDIAC DISORDER
  2. TRAMADOL HCL [Concomitant]
     Indication: PAIN
  3. CALCIUM GLUCONATE [Concomitant]
     Indication: THROMBOSIS
  4. FLONASE [Concomitant]
     Indication: SINUS DISORDER
  5. SEROQUEL XR [Suspect]
     Indication: BIPOLAR DISORDER
     Route: 048
  6. SEROQUEL XR [Suspect]
     Dosage: CUTTING IN HALF AND TAKING EVERY OTHER DAY
     Route: 048
  7. MAGNESIUM [Concomitant]
     Indication: THROMBOSIS
  8. PLAVIX [Concomitant]
  9. SINGULAIR [Concomitant]
     Indication: HYPERSENSITIVITY

REACTIONS (4)
  - INAPPROPRIATE SCHEDULE OF DRUG ADMINISTRATION [None]
  - WEIGHT INCREASED [None]
  - WRONG TECHNIQUE IN DRUG USAGE PROCESS [None]
  - DRUG DOSE OMISSION [None]
